FAERS Safety Report 8416521-0 (Version None)
Quarter: 2012Q2

REPORT INFORMATION
  Report Type: 
  Country: None (occurrence: None)
  Receive Date: 20120606
  Receipt Date: 20120529
  Transmission Date: 20120825
  Serious: Yes (Other)
  Sender: FDA-Public Use
  Company Number: US-GLAXOSMITHKLINE-A0978585A

PATIENT
  Age: 59 Year
  Sex: Female

DRUGS (3)
  1. SEROQUEL [Concomitant]
  2. LAMICTAL [Suspect]
     Indication: CONVULSION
     Dosage: 200MG TWICE PER DAY
     Route: 048
     Dates: start: 20070101
  3. DEPAKOTE [Concomitant]

REACTIONS (10)
  - PARTIAL SEIZURES [None]
  - CONTUSION [None]
  - CONVULSION [None]
  - HEAD INJURY [None]
  - DYSPNOEA [None]
  - JOINT INJURY [None]
  - PAIN [None]
  - FALL [None]
  - CHEST PAIN [None]
  - SKIN DISCOLOURATION [None]
